FAERS Safety Report 23257477 (Version 2)
Quarter: 2024Q1

REPORT INFORMATION
  Report Type: Spontaneous
  Country: AU (occurrence: AU)
  Receive Date: 20231204
  Receipt Date: 20240104
  Transmission Date: 20240409
  Serious: Yes (Hospitalization, Other)
  Sender: FDA-Public Use
  Company Number: AU-BAYER-2023A170989

PATIENT
  Age: 66 Year
  Sex: Male

DRUGS (4)
  1. EYLEA [Suspect]
     Active Substance: AFLIBERCEPT
     Indication: Product used for unknown indication
     Dosage: UNK, 40 MG/ML
     Dates: start: 20231121
  2. MAXIDEX [Suspect]
     Active Substance: DEXAMETHASONE
     Indication: Product used for unknown indication
  3. UNSPECIFIED INGREDIENT [Concomitant]
     Active Substance: UNSPECIFIED INGREDIENT
     Indication: Product used for unknown indication
     Dosage: 36 DF; RIGHT EYE
     Dates: start: 20180403
  4. UNSPECIFIED INGREDIENT [Concomitant]
     Active Substance: UNSPECIFIED INGREDIENT
     Dosage: 34 DF; RIGHT EYE
     Dates: start: 20180417

REACTIONS (6)
  - Blindness [Recovered/Resolved with Sequelae]
  - Retinal injury [Unknown]
  - Hypopyon [Recovered/Resolved with Sequelae]
  - Eye infection intraocular [Unknown]
  - Eye pain [Unknown]
  - Intraocular pressure increased [Recovered/Resolved with Sequelae]

NARRATIVE: CASE EVENT DATE: 20231122
